FAERS Safety Report 7658782-1 (Version None)
Quarter: 2011Q3

REPORT INFORMATION
  Report Type: 
  Country: None (occurrence: None)
  Receive Date: 20110805
  Receipt Date: 20110805
  Transmission Date: 20111222
  Serious: Yes (Hospitalization, Disabling)
  Sender: FDA-Public Use
  Company Number: None

PATIENT
  Age: 29 Year
  Sex: Female
  Weight: 81.646 kg

DRUGS (1)
  1. MIRENA [Suspect]

REACTIONS (2)
  - UTERINE PERFORATION [None]
  - MEDICAL DEVICE COMPLICATION [None]
